FAERS Safety Report 14436805 (Version 1)
Quarter: 2018Q1

REPORT INFORMATION
  Report Type: Spontaneous
  Country: US (occurrence: US)
  Receive Date: 20180125
  Receipt Date: 20180125
  Transmission Date: 20180509
  Serious: No
  Sender: FDA-Public Use
  Company Number: US-UNITED THERAPEUTICS-UNT-2017-006862

PATIENT
  Sex: Female
  Weight: 96.6 kg

DRUGS (3)
  1. OPSUMIT [Concomitant]
     Active Substance: MACITENTAN
     Indication: PRODUCT USED FOR UNKNOWN INDICATION
  2. TYVASO [Suspect]
     Active Substance: TREPROSTINIL
     Indication: PULMONARY ARTERIAL HYPERTENSION
     Dosage: 18-54 MICROGRAMS, QID
     Dates: start: 20170421
  3. TYVASO [Suspect]
     Active Substance: TREPROSTINIL
     Dosage: UNK

REACTIONS (8)
  - Flushing [Unknown]
  - Oxygen consumption increased [Unknown]
  - Malaise [Unknown]
  - Diastolic hypotension [Unknown]
  - Cough [Unknown]
  - Productive cough [Unknown]
  - Drug ineffective [Unknown]
  - Headache [Unknown]

NARRATIVE: CASE EVENT DATE: 2017
